FAERS Safety Report 4464690-X (Version None)
Quarter: 2004Q3

REPORT INFORMATION
  Report Type: 
  Country: None (occurrence: None)
  Receive Date: 20040929
  Receipt Date: 20040915
  Transmission Date: 20050211
  Serious: Yes (Life-Threatening, Other)
  Sender: FDA-Public Use
  Company Number: US_990115784

PATIENT
  Age: 54 Year
  Sex: Female
  Weight: 48 kg

DRUGS (3)
  1. HUMALOG [Suspect]
     Indication: DIABETES MELLITUS
     Dosage: 5 U/5 DAY
     Dates: start: 19981201
  2. HUMULIN U [Suspect]
     Indication: DIABETES MELLITUS
     Dosage: 3 U/2 DAY
     Dates: start: 19981201
  3. NPH ILETIN I (BEEF-PORK) [Suspect]

REACTIONS (10)
  - BLOOD GLUCOSE FLUCTUATION [None]
  - CONTUSION [None]
  - DIABETES MELLITUS INSULIN-DEPENDENT [None]
  - DYSPNOEA [None]
  - HEART RATE DECREASED [None]
  - HYPOAESTHESIA [None]
  - PAIN IN EXTREMITY [None]
  - PHARMACEUTICAL PRODUCT COMPLAINT [None]
  - SKIN DISORDER [None]
  - VIRAL MYOCARDITIS [None]
